FAERS Safety Report 5310197-7 (Version None)
Quarter: 2007Q2

REPORT INFORMATION
  Report Type: 
  Country: None (occurrence: None)
  Receive Date: 20070427
  Receipt Date: 20070419
  Transmission Date: 20071010
  Serious: Yes (Hospitalization)
  Sender: FDA-Public Use
  Company Number: 2007SE02212

PATIENT
  Sex: Female
  Weight: 109 kg

DRUGS (8)
  1. SEROQUEL [Suspect]
     Route: 048
     Dates: start: 20061030, end: 20070112
  2. SEROQUEL [Suspect]
     Route: 048
     Dates: start: 20070112
  3. CLOZAPINE [Suspect]
     Route: 048
     Dates: start: 20061025, end: 20070112
  4. CLOZAPINE [Suspect]
     Route: 048
     Dates: start: 20070112
  5. EN [Suspect]
     Route: 048
     Dates: start: 20060706
  6. ANAFRANIL [Suspect]
     Route: 048
     Dates: start: 20060706, end: 20060925
  7. ANAFRANIL [Suspect]
     Route: 048
     Dates: start: 20060925
  8. ABILIFY [Suspect]
     Route: 048
     Dates: start: 20060706

REACTIONS (1)
  - OBESITY [None]
